FAERS Safety Report 5936674-3 (Version None)
Quarter: 2008Q4

REPORT INFORMATION
  Report Type: 
  Country: None (occurrence: None)
  Receive Date: 20081030
  Receipt Date: 20081021
  Transmission Date: 20090506
  Serious: Yes (Hospitalization, Other)
  Sender: FDA-Public Use
  Company Number: US-ABBOTT-08P-163-0482994-00

PATIENT
  Sex: Female

DRUGS (6)
  1. DEPAKOTE [Suspect]
     Indication: CONVULSION
     Route: 048
     Dates: start: 20041001
  2. DEPAKOTE [Suspect]
     Indication: MIGRAINE
     Dates: end: 20050301
  3. ALPRAZOLAM [Concomitant]
     Indication: CONVULSION
  4. PHENERGAN HCL [Concomitant]
     Indication: NAUSEA
  5. VENLAFAXINE HCL [Concomitant]
     Indication: DEPRESSION
  6. DOCUSATE SODIUM [Concomitant]
     Indication: DRUG USE FOR UNKNOWN INDICATION

REACTIONS (14)
  - ABDOMINAL PAIN UPPER [None]
  - ALPHA-1 ANTI-TRYPSIN DEFICIENCY [None]
  - CAROTID ARTERIAL EMBOLUS [None]
  - CATHETER RELATED INFECTION [None]
  - DIABETES MELLITUS [None]
  - DYSPNOEA [None]
  - HEPATIC ENZYME INCREASED [None]
  - HEPATOMEGALY [None]
  - LUNG NEOPLASM [None]
  - MIGRAINE [None]
  - PULMONARY FIBROSIS [None]
  - SKIN DISCOLOURATION [None]
  - SWELLING [None]
  - VASCULAR RUPTURE [None]
